FAERS Safety Report 8515940-1 (Version None)
Quarter: 2012Q3

REPORT INFORMATION
  Report Type: 
  Country: None (occurrence: None)
  Receive Date: 20120717
  Receipt Date: 20120705
  Transmission Date: 20120928
  Serious: Yes (Other)
  Sender: FDA-Public Use
  Company Number: US-009507513-1207USA003122

PATIENT

DRUGS (8)
  1. CLONAZEPAM [Concomitant]
     Dosage: HALF TO ONE TABLET AT BED TIME AS NEEDED
     Route: 048
  2. ZONISAMIDE [Concomitant]
     Dosage: 200 MG, BID
     Route: 048
  3. LAMOTRIGINE [Concomitant]
     Dosage: 200 MG, BID
     Route: 048
  4. FELBATOL [Suspect]
     Indication: EPILEPSY
     Dosage: 600 MG PER 5 ML
     Route: 048
     Dates: start: 19980101, end: 20120619
  5. FELBATOL [Suspect]
     Dosage: 600 MG PER 5 ML
     Route: 048
     Dates: start: 20120101
  6. CLONIDINE [Concomitant]
     Dosage: 0.1 MG, AT BED TIME AS NEEDED
     Route: 048
  7. PROZAC [Concomitant]
     Dosage: 20 MG PER 5 ML
     Route: 048
  8. RISPERDAL [Concomitant]
     Dosage: 3 MG, HS
     Route: 048

REACTIONS (1)
  - DRUG WITHDRAWAL CONVULSIONS [None]
